FAERS Safety Report 5584077-6 (Version None)
Quarter: 2008Q1

REPORT INFORMATION
  Report Type: 
  Country: None (occurrence: None)
  Receive Date: 20080103
  Receipt Date: 20071227
  Transmission Date: 20080703
  Serious: Yes (Hospitalization)
  Sender: FDA-Public Use
  Company Number: 2007BI027032

PATIENT
  Age: 49 Year
  Sex: Male
  Weight: 76.2043 kg

DRUGS (5)
  1. AVONEX [Suspect]
     Indication: MULTIPLE SCLEROSIS
     Dosage: 30 UG QW IM
     Route: 030
     Dates: start: 19980101, end: 20020101
  2. AVONEX [Suspect]
     Indication: MULTIPLE SCLEROSIS
     Dosage: 30 UG QW IM
     Route: 030
     Dates: end: 20071001
  3. TYLENOL [Concomitant]
  4. BP MEDICATION (NOS) [Concomitant]
  5. NIACIN [Concomitant]

REACTIONS (11)
  - BALANCE DISORDER [None]
  - DEPRESSION [None]
  - FALL [None]
  - INSOMNIA [None]
  - LOSS OF CONTROL OF LEGS [None]
  - MALAISE [None]
  - MOBILITY DECREASED [None]
  - MULTIPLE SCLEROSIS RELAPSE [None]
  - MYOCARDIAL INFARCTION [None]
  - PAIN [None]
  - TENSION [None]
